FAERS Safety Report 18881906 (Version 1)
Quarter: 2021Q1

REPORT INFORMATION
  Report Type: Spontaneous
  Country: DE (occurrence: DE)
  Receive Date: 20210212
  Receipt Date: 20210212
  Transmission Date: 20210420
  Serious: Yes (Life-Threatening, Other)
  Sender: FDA-Public Use
  Company Number: DE-009507513-2102DEU004166

PATIENT
  Age: 25 Month
  Sex: Female
  Weight: 11 kg

DRUGS (1)
  1. IVEMEND 150MG [Suspect]
     Active Substance: FOSAPREPITANT DIMEGLUMINE
     Indication: ANTIEMETIC SUPPORTIVE CARE
     Dosage: 30 MG
     Route: 042
     Dates: start: 20210201, end: 20210201

REACTIONS (4)
  - Apnoea [Recovered/Resolved]
  - Apathy [Recovered/Resolved]
  - Hypotonia [Recovered/Resolved]
  - Hypopnoea [Recovered/Resolved]

NARRATIVE: CASE EVENT DATE: 20210201
